FAERS Safety Report 6591563-9 (Version None)
Quarter: 2010Q1

REPORT INFORMATION
  Report Type: 
  Country: None (occurrence: None)
  Receive Date: 20100221
  Receipt Date: 20100209
  Transmission Date: 20100710
  Serious: Yes (Death, Hospitalization, Other)
  Sender: FDA-Public Use
  Company Number: AU-MERCK-0909USA00822

PATIENT
  Age: 56 Year
  Sex: Female

DRUGS (2)
  1. ZETIA [Suspect]
     Route: 048
  2. LIPITOR [Suspect]
     Route: 065
     Dates: start: 20050101, end: 20070101

REACTIONS (4)
  - BLOOD CREATINE PHOSPHOKINASE INCREASED [None]
  - MUSCLE NECROSIS [None]
  - MUSCULAR WEAKNESS [None]
  - MYALGIA [None]
